FAERS Safety Report 22042544 (Version 1)
Quarter: 2023Q1

REPORT INFORMATION
  Report Type: Spontaneous
  Country: DE (occurrence: DE)
  Receive Date: 20230228
  Receipt Date: 20230228
  Transmission Date: 20230417
  Serious: Yes (Other)
  Sender: FDA-Public Use
  Company Number: DE-EMBRYOTOX-202115296

PATIENT
  Sex: Female
  Weight: 79 kg

DRUGS (17)
  1. PREGABALIN [Suspect]
     Active Substance: PREGABALIN
     Indication: Neuralgia
     Dosage: 450 MILLIGRAM, DAILY
     Route: 048
     Dates: start: 20210707, end: 20220401
  2. PREGABALIN [Suspect]
     Active Substance: PREGABALIN
     Dosage: 100 MILLIGRAM, DAILY
     Route: 048
  3. CARBIDOPA\LEVODOPA [Suspect]
     Active Substance: CARBIDOPA\LEVODOPA
     Indication: Restless legs syndrome
     Dosage: 25 MILLIGRAM, DAILY
     Route: 048
  4. CARBIDOPA\LEVODOPA [Suspect]
     Active Substance: CARBIDOPA\LEVODOPA
     Dosage: 100 MILLIGRAM, DAILY
     Route: 048
  5. MIRTAZAPINE [Suspect]
     Active Substance: MIRTAZAPINE
     Indication: Depression
     Dosage: 30 MILLIGRAM, DAILY
     Route: 048
     Dates: start: 20210707, end: 20220401
  6. MIRTAZAPINE [Suspect]
     Active Substance: MIRTAZAPINE
     Dosage: 15 MILLIGRAM, DAILY
     Route: 048
  7. DULOXETINE [Suspect]
     Active Substance: DULOXETINE
     Indication: Depression
     Dosage: 60 MILLIGRAM, DAILY
     Route: 048
     Dates: start: 20210707, end: 20220401
  8. HYDROMORPHONE [Concomitant]
     Active Substance: HYDROMORPHONE
     Indication: Bone pain
     Dosage: 2 MILLIGRAM, DAILY, AT LEAST UNTIL GW 9.2, NOT KNOWN UNTIL WHEN
     Route: 048
     Dates: start: 20210707, end: 20210910
  9. BENSERAZIDE\LEVODOPA [Concomitant]
     Active Substance: BENSERAZIDE\LEVODOPA
     Indication: Restless legs syndrome
     Dosage: 100 MILLIGRAM, DAILY
     Route: 048
     Dates: start: 20210707, end: 20210910
  10. BENSERAZIDE\LEVODOPA [Concomitant]
     Active Substance: BENSERAZIDE\LEVODOPA
     Dosage: 25 MILLIGRAM, DAILY
     Route: 048
  11. ATORVASTATIN [Concomitant]
     Active Substance: ATORVASTATIN
     Indication: Hypercholesterolaemia
     Dosage: 10 MILLIGRAM, DAILY, STOPPED IN EARLY PREGNANCY, GW NOT KNOWN
     Route: 048
  12. FOLIC ACID [Concomitant]
     Active Substance: FOLIC ACID
     Indication: Prophylaxis of neural tube defect
     Dosage: 5 MILLIGRAM, DAILY
     Route: 048
     Dates: start: 20210707, end: 20220401
  13. PANTOPRAZOLE SODIUM [Concomitant]
     Active Substance: PANTOPRAZOLE SODIUM
     Indication: Gastrooesophageal reflux disease
     Dosage: 80 MILLIGRAM, DAILY
     Route: 048
     Dates: start: 20210707, end: 20220401
  14. PANTOPRAZOLE SODIUM [Concomitant]
     Active Substance: PANTOPRAZOLE SODIUM
     Dosage: 40 MILLIGRAM, 1-2X/DAILY
     Route: 065
  15. NOVALGIN (METAMIZOLE SODIUM) [Concomitant]
     Active Substance: METAMIZOLE SODIUM
     Indication: Bone pain
     Dosage: 3000 MILLIGRAM, DAILY, ON DEMAND UNTIL MAX. GW 20
     Route: 048
  16. EUTHYROX [Concomitant]
     Active Substance: LEVOTHYROXINE SODIUM
     Indication: Hypothyroidism
     Dosage: 75 MICROGRAM, DAILY
     Route: 048
     Dates: start: 20210707, end: 20220401
  17. BOOSTRIX [Concomitant]
     Active Substance: TETANUS TOXOID, REDUCED DIPHTHERIA TOXOID AND ACELLULAR PERTUSSIS VACCINE, ADSORBED ANTIGENS
     Indication: Immunisation
     Dosage: UNK
     Route: 030
     Dates: start: 20220304, end: 20220304

REACTIONS (3)
  - Foetal death [Recovered/Resolved]
  - Stillbirth [Recovered/Resolved]
  - Exposure during pregnancy [Unknown]
